FAERS Safety Report 8418540-7 (Version None)
Quarter: 2012Q2

REPORT INFORMATION
  Report Type: 
  Country: None (occurrence: None)
  Receive Date: 20120607
  Receipt Date: 20120530
  Transmission Date: 20120825
  Serious: Yes (Hospitalization)
  Sender: FDA-Public Use
  Company Number: JP-GENZYME-THYM-1001907

PATIENT
  Sex: Male
  Weight: 8 kg

DRUGS (26)
  1. NIFEDIPINE [Concomitant]
     Indication: PROPHYLAXIS
     Dosage: UNK
     Route: 065
     Dates: start: 20100503, end: 20100510
  2. TACROLIMUS [Concomitant]
     Indication: PROPHYLAXIS AGAINST GRAFT VERSUS HOST DISEASE
     Dosage: UNK
     Route: 065
     Dates: start: 20100520
  3. FREEZE-DRIED SULFONATED HUMAN [Concomitant]
     Indication: INFECTION PROPHYLAXIS
     Dosage: UNK
     Route: 065
     Dates: start: 20100519, end: 20100620
  4. CYCLOSPORINE [Concomitant]
     Indication: HISTIOCYTOSIS HAEMATOPHAGIC
     Dosage: UNK
     Route: 065
     Dates: start: 20100503, end: 20100604
  5. GRANISETRON HYDROCHLORIDE [Concomitant]
     Indication: PROPHYLAXIS OF NAUSEA AND VOMITING
     Dosage: UNK
     Route: 065
     Dates: start: 20100514, end: 20100518
  6. ITRACONAZOLE [Concomitant]
     Indication: ANTIFUNGAL PROPHYLAXIS
     Dosage: UNK
     Route: 065
     Dates: start: 20100614
  7. MICAFUNGIN SODIUM [Concomitant]
     Indication: ANTIFUNGAL PROPHYLAXIS
     Dosage: UNK
     Route: 065
     Dates: start: 20100513, end: 20100614
  8. LENOGRASTIM [Concomitant]
     Indication: INFECTION PROPHYLAXIS
     Dosage: UNK
     Route: 065
     Dates: start: 20100521, end: 20100603
  9. LACTOMIN [Concomitant]
     Indication: PROPHYLAXIS AGAINST DIARRHOEA
     Dosage: UNK
     Route: 065
     Dates: start: 20100503
  10. FAMOTIDINE [Concomitant]
     Indication: PROPHYLAXIS AGAINST GASTROINTESTINAL ULCER
     Dosage: UNK
     Route: 065
     Dates: start: 20100507, end: 20100510
  11. URSODIOL [Concomitant]
     Indication: PROPHYLAXIS
     Dosage: UNK
     Route: 065
     Dates: start: 20100520, end: 20100610
  12. FLUDARABINE PHOSPHATE [Concomitant]
     Indication: BONE MARROW CONDITIONING REGIMEN
     Dosage: UNK
     Route: 065
     Dates: start: 20100514, end: 20100517
  13. MEROPENEM [Concomitant]
     Indication: INFECTION PROPHYLAXIS
     Dosage: UNK
     Route: 065
     Dates: start: 20100528, end: 20100610
  14. ALPROSTADIL [Concomitant]
     Indication: PROPHYLAXIS
     Dosage: UNK
     Route: 065
     Dates: start: 20100520, end: 20100603
  15. THYMOGLOBULIN [Suspect]
     Indication: BONE MARROW CONDITIONING REGIMEN
     Dosage: 10 MG, QD
     Route: 042
     Dates: start: 20100514, end: 20100517
  16. DEXAMETHASONE [Concomitant]
     Indication: HISTIOCYTOSIS HAEMATOPHAGIC
     Dosage: UNK
     Route: 065
     Dates: start: 20100507, end: 20100510
  17. PREDNISOLONE [Concomitant]
     Indication: PROPHYLAXIS AGAINST GRAFT VERSUS HOST DISEASE
     Dosage: UNK
     Route: 065
     Dates: start: 20100610
  18. MELPHALAN HYDROCHLORIDE [Concomitant]
     Indication: BONE MARROW CONDITIONING REGIMEN
     Dosage: UNK
     Route: 065
     Dates: start: 20100516, end: 20100517
  19. FUROSEMIDE [Concomitant]
     Indication: OEDEMA
     Dosage: UNK
     Route: 065
     Dates: start: 20100510, end: 20100610
  20. METHYLPREDNISOLONE SODIUM SUCCINATE [Concomitant]
     Indication: PREMEDICATION
     Dosage: UNK
     Route: 065
     Dates: start: 20100514, end: 20100517
  21. ENALAPRIL MALEATE [Concomitant]
     Indication: PROPHYLAXIS
     Dosage: UNK
     Route: 065
     Dates: start: 20100503, end: 20100510
  22. ACYCLOVIR [Concomitant]
     Indication: ANTIVIRAL PROPHYLAXIS
     Dosage: UNK
     Route: 065
     Dates: start: 20100513, end: 20100614
  23. DALTEPARIN SODIUM [Concomitant]
     Indication: PROPHYLAXIS
     Dosage: UNK
     Route: 065
     Dates: start: 20100513, end: 20100525
  24. HYDROXYZINE HYDROCHLORIDE [Concomitant]
     Indication: PREMEDICATION
     Dosage: UNK
     Route: 065
     Dates: start: 20100514, end: 20100517
  25. METHOTREXATE [Concomitant]
     Indication: PROPHYLAXIS AGAINST GRAFT VERSUS HOST DISEASE
     Dosage: UNK
     Route: 065
     Dates: start: 20100521, end: 20100530
  26. TOBRAMYCIN [Concomitant]
     Indication: INFECTION PROPHYLAXIS
     Dosage: UNK
     Route: 065
     Dates: start: 20100529, end: 20100610

REACTIONS (2)
  - MUCOUS MEMBRANE DISORDER [None]
  - VENOOCCLUSIVE LIVER DISEASE [None]
